FAERS Safety Report 13184767 (Version 1)
Quarter: 2017Q1

REPORT INFORMATION
  Report Type: Spontaneous
  Country: FR (occurrence: FR)
  Receive Date: 20170203
  Receipt Date: 20170203
  Transmission Date: 20170428
  Serious: Yes (Hospitalization, Other)
  Sender: FDA-Public Use
  Company Number: FR-INDIVIOR LIMITED-INDV-098402-2017

PATIENT
  Age: 62 Year
  Sex: Male

DRUGS (2)
  1. SUBUTEX [Suspect]
     Active Substance: BUPRENORPHINE HYDROCHLORIDE
     Indication: PRODUCT USED FOR UNKNOWN INDICATION
     Dosage: TWO TABLETS IN THE MORNING, TWO TABLETS AT MIDDAY AND ONE TABLET IN THE EVENING
     Route: 060
  2. ALCOHOL. [Suspect]
     Active Substance: ALCOHOL
     Indication: PRODUCT USED FOR UNKNOWN INDICATION
     Dosage: UNK
     Route: 065

REACTIONS (5)
  - Intentional product misuse [Unknown]
  - Femur fracture [Unknown]
  - Alcohol abuse [Unknown]
  - Product use issue [Unknown]
  - Fall [Recovered/Resolved]
